FAERS Safety Report 16915154 (Version 1)
Quarter: 2019Q4

REPORT INFORMATION
  Report Type: Spontaneous
  Country: CN (occurrence: CN)
  Receive Date: 20191014
  Receipt Date: 20191014
  Transmission Date: 20200122
  Serious: Yes (Other)
  Sender: FDA-Public Use
  Company Number: CN-PFIZER INC-2019437540

PATIENT
  Sex: Female

DRUGS (1)
  1. ZOLOFT [Suspect]
     Active Substance: SERTRALINE HYDROCHLORIDE
     Dosage: UNK
     Route: 048

REACTIONS (16)
  - Weight increased [Unknown]
  - C-reactive protein increased [Unknown]
  - High density lipoprotein decreased [Unknown]
  - Apolipoprotein decreased [Unknown]
  - Red blood cell count increased [Unknown]
  - Platelet disorder [Unknown]
  - Blood 25-hydroxycholecalciferol decreased [Unknown]
  - Insomnia [Unknown]
  - Immune system disorder [Unknown]
  - Protein total increased [Unknown]
  - Blood urine present [Recovered/Resolved]
  - Blood alkaline phosphatase increased [Unknown]
  - Blood triglycerides increased [Unknown]
  - Blood homocysteine increased [Unknown]
  - Abdominal discomfort [Unknown]
  - Platelet count increased [Unknown]
